FAERS Safety Report 9709111 (Version 3)
Quarter: 2013Q4

REPORT INFORMATION
  Report Type: Other
  Country: US (occurrence: US)
  Receive Date: 20131125
  Receipt Date: 20131231
  Transmission Date: 20140711
  Serious: Yes (Hospitalization, Other)
  Sender: FDA-Public Use
  Company Number: US-ACORDA-ACO_34367_2013

PATIENT
  Age: 63 Year
  Sex: Male

DRUGS (5)
  1. AMPYRA [Suspect]
     Indication: GAIT DISTURBANCE
     Dosage: 10 MG, BID
     Route: 048
     Dates: start: 20120104
  2. AMPYRA [Suspect]
     Dosage: 10 MG, BID
     Route: 065
     Dates: start: 20130607, end: 201310
  3. AMPYRA [Suspect]
     Dosage: 10 MG, BID
     Dates: start: 201311
  4. FLOMAX [Concomitant]
     Indication: URINARY INCONTINENCE
     Dosage: UNK,UNK
     Route: 065
  5. CYMBALTA [Concomitant]
     Indication: DEPRESSION
     Dosage: UNK,UNK
     Route: 065

REACTIONS (11)
  - Cerebral haemorrhage [Unknown]
  - Hip fracture [Unknown]
  - Infection [Unknown]
  - Fall [Unknown]
  - Wheelchair user [Not Recovered/Not Resolved]
  - Multiple sclerosis relapse [Unknown]
  - Joint injury [Unknown]
  - Incontinence [Unknown]
  - Dysstasia [Unknown]
  - Muscular weakness [Not Recovered/Not Resolved]
  - Asthenia [Unknown]
